FAERS Safety Report 6386222-1 (Version None)
Quarter: 2009Q4

REPORT INFORMATION
  Report Type: 
  Country: None (occurrence: None)
  Receive Date: 20091002
  Receipt Date: 20090917
  Transmission Date: 20100525
  Serious: Yes (Hospitalization)
  Sender: FDA-Public Use
  Company Number: FR-BAYER-200933020GPV

PATIENT
  Age: 42 Year
  Sex: Female

DRUGS (4)
  1. ALEVE [Suspect]
     Indication: HEADACHE
     Dosage: UNIT DOSE: 220 MG
     Route: 048
     Dates: start: 20090717, end: 20090717
  2. EXACYL [Concomitant]
     Dosage: UNIT DOSE: 1 DF
     Route: 048
     Dates: start: 20090717, end: 20090721
  3. NOMEGESTROL [Concomitant]
     Dosage: FOLLOWING CYCLE
     Route: 048
     Dates: start: 20090717
  4. FUMAFER [Concomitant]
     Dosage: UNIT DOSE: 66 MG
     Route: 048
     Dates: start: 20090717

REACTIONS (5)
  - HEADACHE [None]
  - HYPERTENSION [None]
  - MALAISE [None]
  - NAUSEA [None]
  - SOMNOLENCE [None]
